FAERS Safety Report 25249697 (Version 1)
Quarter: 2025Q2

REPORT INFORMATION
  Report Type: Report from Study
  Country: BR (occurrence: BR)
  Receive Date: 20250429
  Receipt Date: 20250429
  Transmission Date: 20250716
  Serious: Yes (Other)
  Sender: EMD SERONO INC
  Company Number: BR-Merck Healthcare KGaA-2025020603

PATIENT
  Age: 17 Year
  Sex: Male

DRUGS (1)
  1. INTERFERON BETA-1A [Suspect]
     Active Substance: INTERFERON BETA-1A
     Indication: Multiple sclerosis
     Dates: start: 20250305

REACTIONS (3)
  - Petit mal epilepsy [Unknown]
  - Multiple sclerosis [Unknown]
  - Sleep terror [Unknown]

NARRATIVE: CASE EVENT DATE: 20250401
